FAERS Safety Report 25604510 (Version 1)
Quarter: 2025Q3

REPORT INFORMATION
  Report Type: Spontaneous
  Country: GB (occurrence: GB)
  Receive Date: 20250725
  Receipt Date: 20250725
  Transmission Date: 20251020
  Serious: Yes (Other)
  Sender: TEVA
  Company Number: GB-MHRA-TPP3139953C5367793YC1752572318875

PATIENT
  Age: 82 Year
  Sex: Male
  Weight: 76 kg

DRUGS (11)
  1. DOXYCYCLINE [Suspect]
     Active Substance: DOXYCYCLINE
     Indication: Ill-defined disorder
     Route: 048
     Dates: start: 20250620
  2. BECLOMETHASONE DIPROPIONATE\FORMOTEROL FUMARATE\GLYCOPYRROLATE [Concomitant]
     Active Substance: BECLOMETHASONE DIPROPIONATE\FORMOTEROL FUMARATE\GLYCOPYRROLATE
     Indication: Ill-defined disorder
     Dates: start: 20240604
  3. BISOPROLOL [Concomitant]
     Active Substance: BISOPROLOL
     Indication: Ill-defined disorder
     Route: 048
     Dates: start: 20250317
  4. LOSARTAN [Concomitant]
     Active Substance: LOSARTAN
     Indication: Ill-defined disorder
     Route: 048
     Dates: start: 20240604
  5. FLUTICASONE PROPIONATE [Concomitant]
     Active Substance: FLUTICASONE PROPIONATE
     Indication: Ill-defined disorder
     Dosage: SPRAY
     Dates: start: 20240604
  6. OFLOXACIN [Concomitant]
     Active Substance: OFLOXACIN
     Indication: Ill-defined disorder
     Dosage: FOR 14 DAYS
     Route: 048
     Dates: start: 20250618, end: 20250702
  7. ROSUVASTATIN [Concomitant]
     Active Substance: ROSUVASTATIN
     Indication: Ill-defined disorder
     Route: 048
     Dates: start: 20250130
  8. ASPIRIN [Concomitant]
     Active Substance: ASPIRIN
     Indication: Ill-defined disorder
     Route: 048
     Dates: start: 20250317
  9. HYDROCORTISONE [Concomitant]
     Active Substance: HYDROCORTISONE
     Indication: Ill-defined disorder
     Dosage: THIN LAYER
     Dates: start: 20250714
  10. EASYHALER [Concomitant]
     Indication: Ill-defined disorder
     Dates: start: 20240604
  11. BUTYLSCOPOLAMINE BROMIDE [Concomitant]
     Active Substance: BUTYLSCOPOLAMINE BROMIDE
     Indication: Ill-defined disorder
     Route: 048
     Dates: start: 20250714

REACTIONS (3)
  - Skin exfoliation [Unknown]
  - Abdominal pain upper [Unknown]
  - Blister [Unknown]

NARRATIVE: CASE EVENT DATE: 20250715
